FAERS Safety Report 21871958 (Version 1)
Quarter: 2023Q1

REPORT INFORMATION
  Report Type: Spontaneous
  Country: US (occurrence: None)
  Receive Date: 20230114
  Receipt Date: 20230114
  Transmission Date: 20230418
  Serious: Yes (Other)
  Sender: FDA-Public Use
  Company Number: None

PATIENT
  Age: 66 Year
  Sex: Female
  Weight: 65.25 kg

DRUGS (7)
  1. ALENDRONATE SODIUM [Suspect]
     Active Substance: ALENDRONATE SODIUM
     Indication: Osteoporosis
     Dosage: OTHER QUANTITY : 1 TABLET(S);?OTHER FREQUENCY : ONCE WEEKLY;?
     Route: 048
     Dates: start: 20220902, end: 20220902
  2. PROPRANOLOL [Concomitant]
  3. LATANOPROST [Concomitant]
  4. ACETAMINOPHEN\BUTALBITAL\CAFFEINE [Concomitant]
     Active Substance: ACETAMINOPHEN\BUTALBITAL\CAFFEINE
  5. ATORVASTATIN [Concomitant]
     Active Substance: ATORVASTATIN
  6. CITRACAL 1200 MG WITH D [Concomitant]
  7. JUICEFESTIV [Concomitant]

REACTIONS (6)
  - Bone pain [None]
  - Feeling abnormal [None]
  - Discomfort [None]
  - Feeling cold [None]
  - Loss of consciousness [None]
  - Disorientation [None]

NARRATIVE: CASE EVENT DATE: 20220902
